FAERS Safety Report 6653723-8 (Version None)
Quarter: 2010Q1

REPORT INFORMATION
  Report Type: 
  Country: None (occurrence: None)
  Receive Date: 20100326
  Receipt Date: 20100323
  Transmission Date: 20100710
  Serious: Yes (Death, Hospitalization)
  Sender: FDA-Public Use
  Company Number: US-BRISTOL-MYERS SQUIBB COMPANY-15023864

PATIENT
  Age: 71 Year
  Sex: Female
  Weight: 59 kg

DRUGS (2)
  1. COUMADIN [Suspect]
     Indication: MITRAL VALVE REPLACEMENT
     Dates: start: 19710101
  2. DILANTIN [Concomitant]

REACTIONS (4)
  - GASTROINTESTINAL NECROSIS [None]
  - RESPIRATORY DISTRESS [None]
  - THROAT CANCER [None]
  - THROMBOSIS [None]
